FAERS Safety Report 6116081-3 (Version None)
Quarter: 2009Q1

REPORT INFORMATION
  Report Type: 
  Country: None (occurrence: None)
  Receive Date: 20090314
  Receipt Date: 20090205
  Transmission Date: 20090719
  Serious: No
  Sender: FDA-Public Use
  Company Number: US-ABBOTT-08P-163-0488199-00

PATIENT
  Sex: Female
  Weight: 108.96 kg

DRUGS (11)
  1. HUMIRA [Suspect]
     Indication: RHEUMATOID ARTHRITIS
     Route: 058
     Dates: start: 20080918, end: 20081210
  2. HUMIRA [Suspect]
     Route: 058
     Dates: start: 20081126
  3. FLEXERIL [Concomitant]
     Indication: FIBROMYALGIA
     Route: 048
  4. METHOTREXATE [Concomitant]
     Indication: RHEUMATOID ARTHRITIS
     Route: 048
  5. PREDNISONE [Concomitant]
     Indication: RHEUMATOID ARTHRITIS
     Route: 048
  6. TYLENOL (CAPLET) [Concomitant]
     Indication: PAIN
     Route: 048
  7. MULTI-VITAMIN [Concomitant]
     Indication: VITAMIN SUPPLEMENTATION
  8. CALCIUM [Concomitant]
     Indication: VITAMIN D DECREASED
  9. PREVACID [Concomitant]
     Indication: ULCER
  10. PRILOSEC [Concomitant]
     Indication: PROPHYLAXIS AGAINST GASTROINTESTINAL ULCER
     Route: 048
  11. COLACE [Concomitant]
     Indication: CONSTIPATION
     Route: 048

REACTIONS (6)
  - ACTIVITIES OF DAILY LIVING IMPAIRED [None]
  - DRUG INEFFECTIVE [None]
  - GAIT DISTURBANCE [None]
  - PAIN [None]
  - RHEUMATOID ARTHRITIS [None]
  - SWELLING [None]
